FAERS Safety Report 23441304 (Version 1)
Quarter: 2024Q1

REPORT INFORMATION
  Report Type: Spontaneous
  Country: SI (occurrence: SI)
  Receive Date: 20240125
  Receipt Date: 20240125
  Transmission Date: 20240410
  Serious: Yes (Other)
  Sender: FDA-Public Use
  Company Number: SI-002147023-NVSC2024SI010387

PATIENT
  Sex: Male
  Weight: 72 kg

DRUGS (5)
  1. TOBRADEX [Suspect]
     Active Substance: DEXAMETHASONE\TOBRAMYCIN
     Indication: Product used for unknown indication
     Dosage: UNK (AS NEEDED)
     Route: 065
  2. ASPIRIN [Concomitant]
     Active Substance: ASPIRIN
     Indication: Product used for unknown indication
     Dosage: 100 MG
     Route: 065
  3. EZOLETA [Concomitant]
     Indication: Hypercholesterolaemia
     Dosage: 10 MG
     Route: 065
     Dates: start: 202207
  4. EZOLETA [Concomitant]
     Indication: Drug intolerance
  5. INDAPAMIDE\PERINDOPRIL ERBUMINE [Concomitant]
     Active Substance: INDAPAMIDE\PERINDOPRIL ERBUMINE
     Indication: Product used for unknown indication
     Dosage: 4/1.25 MG
     Route: 065

REACTIONS (5)
  - Myopathy [Unknown]
  - Coronary artery stenosis [Unknown]
  - Peripheral arterial occlusive disease [Unknown]
  - Hypertension [Unknown]
  - Hypercalcaemia [Unknown]
